FAERS Safety Report 23178412 (Version 1)
Quarter: 2023Q4

REPORT INFORMATION
  Report Type: Spontaneous
  Country: US (occurrence: US)
  Receive Date: 20231113
  Receipt Date: 20231113
  Transmission Date: 20240109
  Serious: No
  Sender: FDA-Public Use
  Company Number: US-BIOVITRUM-2023-US-017849

PATIENT
  Age: 65 Year
  Sex: Female

DRUGS (6)
  1. DOPTELET [Suspect]
     Active Substance: AVATROMBOPAG MALEATE
     Indication: Immune thrombocytopenia
     Dosage: 20MG AND 40MG ALTERNATE EVERY OTHER DAY.
     Route: 048
     Dates: start: 2020
  2. WARFARIN [Concomitant]
     Active Substance: WARFARIN
     Indication: Product used for unknown indication
  3. COUMADIN [Concomitant]
     Active Substance: WARFARIN SODIUM
     Indication: Product used for unknown indication
  4. ENAXAPARIN (LOVENOX)/ HEPARIN [Concomitant]
     Indication: Product used for unknown indication
  5. VITAMIN B6 AND B12 [Concomitant]
     Indication: Product used for unknown indication
  6. VITAMIN B6 AND B12 [Concomitant]
     Indication: Product used for unknown indication

REACTIONS (5)
  - Infection parasitic [Unknown]
  - Immune system disorder [Unknown]
  - Hyperplasia [Unknown]
  - Epistaxis [Unknown]
  - Platelet count decreased [Unknown]
